FAERS Safety Report 10535132 (Version 1)
Quarter: 2014Q4

REPORT INFORMATION
  Report Type: Spontaneous
  Country: CN (occurrence: CN)
  Receive Date: 20141022
  Receipt Date: 20141022
  Transmission Date: 20150529
  Serious: Yes (Other)
  Sender: FDA-Public Use
  Company Number: CN-PFIZER INC-2014286344

PATIENT
  Age: 80 Year
  Sex: Male
  Weight: 45 kg

DRUGS (2)
  1. DIFLUCAN [Suspect]
     Active Substance: FLUCONAZOLE
     Indication: INFECTION
     Dosage: 100 ML, 1X/DAY
     Route: 041
     Dates: start: 20140607, end: 20140609
  2. MEROPENEM. [Suspect]
     Active Substance: MEROPENEM
     Indication: INFECTION
     Dosage: 0.5 G, 3X/DAY
     Route: 041
     Dates: start: 20140606, end: 20140609

REACTIONS (3)
  - Delirium [Not Recovered/Not Resolved]
  - Hallucination [Not Recovered/Not Resolved]
  - Dysphoria [Not Recovered/Not Resolved]

NARRATIVE: CASE EVENT DATE: 20140608
